FAERS Safety Report 24190982 (Version 4)
Quarter: 2024Q4

REPORT INFORMATION
  Report Type: Spontaneous
  Country: ES (occurrence: ES)
  Receive Date: 20240808
  Receipt Date: 20241122
  Transmission Date: 20250115
  Serious: Yes (Other)
  Sender: BIOVITRUM
  Company Number: ES-BIOVITRUM-2024-ES-010545

PATIENT
  Sex: Female

DRUGS (3)
  1. PEGCETACOPLAN [Suspect]
     Active Substance: PEGCETACOPLAN
     Indication: Paroxysmal nocturnal haemoglobinuria
  2. AVATROMBOPAG [Suspect]
     Active Substance: AVATROMBOPAG
     Indication: Thrombocytopenia
  3. AVATROMBOPAG [Suspect]
     Active Substance: AVATROMBOPAG
     Indication: Evans syndrome

REACTIONS (7)
  - Evans syndrome [Unknown]
  - Autoimmune haemolytic anaemia [Unknown]
  - Thrombocytopenia [Unknown]
  - Aplastic anaemia [Unknown]
  - Bone marrow failure [Unknown]
  - COVID-19 [Unknown]
  - Off label use [Unknown]

NARRATIVE: CASE EVENT DATE: 20240901
